FAERS Safety Report 15182214 (Version 1)
Quarter: 2018Q3

REPORT INFORMATION
  Report Type: Spontaneous
  Country: IT (occurrence: IT)
  Receive Date: 20180723
  Receipt Date: 20180723
  Transmission Date: 20181010
  Serious: Yes (Hospitalization)
  Sender: FDA-Public Use
  Company Number: IT-009507513-1807ITA007155

PATIENT
  Age: 69 Year
  Sex: Male

DRUGS (1)
  1. PEMBROLIZUMAB. [Suspect]
     Active Substance: PEMBROLIZUMAB
     Indication: LUNG NEOPLASM
     Dosage: CYCLICAL
     Route: 042
     Dates: start: 20180410, end: 20180613

REACTIONS (1)
  - Cerebral ischaemia [Unknown]

NARRATIVE: CASE EVENT DATE: 20180702
